FAERS Safety Report 5393324-5 (Version None)
Quarter: 2007Q3

REPORT INFORMATION
  Report Type: 
  Country: None (occurrence: None)
  Receive Date: 20070723
  Receipt Date: 20070712
  Transmission Date: 20080115
  Serious: Yes (Hospitalization)
  Sender: FDA-Public Use
  Company Number: US-JNJFOC-20070400841

PATIENT
  Age: 80 Year
  Sex: Female
  Weight: 65.32 kg

DRUGS (2)
  1. DURAGESIC-100 [Suspect]
     Indication: PAIN
     Route: 062
  2. FENTANYL [Suspect]
     Indication: DRUG USE FOR UNKNOWN INDICATION
     Route: 062

REACTIONS (6)
  - BLISTER [None]
  - HYPERSENSITIVITY [None]
  - NAUSEA [None]
  - RETCHING [None]
  - SURGERY [None]
  - VOMITING [None]
